FAERS Safety Report 4811032-3 (Version None)
Quarter: 2005Q4

REPORT INFORMATION
  Report Type: 
  Country: None (occurrence: None)
  Receive Date: 20051027
  Receipt Date: 20051021
  Transmission Date: 20060501
  Serious: Yes (Hospitalization)
  Sender: FDA-Public Use
  Company Number: FR-JNJFOC-20051000433

PATIENT
  Age: 43 Year
  Sex: Female
  Weight: 47 kg

DRUGS (4)
  1. REMICADE [Suspect]
     Indication: CROHN'S DISEASE
     Dosage: LAST INFUSION SUMMER 2005.  1 YEAR.
     Route: 042
  2. CORTICOIDS [Concomitant]
     Route: 065
  3. PREVISCAN [Concomitant]
     Indication: PULMONARY EMBOLISM
     Route: 048
  4. PENTASA [Concomitant]
     Route: 048

REACTIONS (2)
  - CYTOMEGALOVIRUS HEPATITIS [None]
  - HEPATOMEGALY [None]
